FAERS Safety Report 4550561-7 (Version None)
Quarter: 2004Q4

REPORT INFORMATION
  Report Type: 
  Country: None (occurrence: None)
  Receive Date: 20041227
  Receipt Date: 20041117
  Transmission Date: 20050328
  Serious: No
  Sender: FDA-Public Use
  Company Number: 04P-163-0281103-00

PATIENT
  Age: 45 Year
  Sex: Female
  Weight: 82.1011 kg

DRUGS (8)
  1. HUMIRA [Suspect]
     Indication: RHEUMATOID ARTHRITIS
     Dosage: SEE IMAGE
     Route: 058
     Dates: start: 20040701, end: 20041001
  2. HUMIRA [Suspect]
     Indication: RHEUMATOID ARTHRITIS
     Dosage: SEE IMAGE
     Route: 058
     Dates: start: 20041001
  3. PERDNISONE [Concomitant]
  4. QUINAPRIL HYDROCLORIDE [Concomitant]
  5. CELECOXIB [Concomitant]
  6. NOVOLOG [Concomitant]
  7. OXYCONTIN [Concomitant]
  8. VICODIN [Concomitant]

REACTIONS (1)
  - DRUG INEFFECTIVE [None]
